FAERS Safety Report 6903906-4 (Version None)
Quarter: 2010Q3

REPORT INFORMATION
  Report Type: 
  Country: None (occurrence: None)
  Receive Date: 20100804
  Receipt Date: 20090131
  Transmission Date: 20110219
  Serious: No
  Sender: FDA-Public Use
  Company Number: US-PFIZER INC-2008048280

PATIENT
  Sex: Male
  Weight: 81.6 kg

DRUGS (9)
  1. LYRICA [Suspect]
     Indication: NEURALGIA
     Dosage: UNK
     Dates: start: 20071101
  2. NEURONTIN [Suspect]
     Indication: NEURALGIA
     Dosage: 300 MG, 3X/DAY
     Route: 048
     Dates: start: 20030101, end: 20041101
  3. FENTANYL CITRATE [Concomitant]
  4. PERCOCET [Concomitant]
  5. CYMBALTA [Concomitant]
  6. PROTONIX [Concomitant]
  7. PEPCID [Concomitant]
  8. PRAVACHOL [Concomitant]
  9. AMBIEN [Concomitant]

REACTIONS (7)
  - BLOOD CHOLESTEROL INCREASED [None]
  - DEPRESSION [None]
  - DRUG INEFFECTIVE [None]
  - INSOMNIA [None]
  - OEDEMA PERIPHERAL [None]
  - SOMNOLENCE [None]
  - WEIGHT INCREASED [None]
